FAERS Safety Report 5368952-3 (Version None)
Quarter: 2007Q2

REPORT INFORMATION
  Report Type: 
  Country: None (occurrence: None)
  Receive Date: 20070625
  Receipt Date: 20061117
  Transmission Date: 20071010
  Serious: No
  Sender: FDA-Public Use
  Company Number: US-ASTRAZENECA-2006UW24767

PATIENT
  Age: 53 Year
  Sex: Male
  Weight: 99.8 kg

DRUGS (3)
  1. CRESTOR [Suspect]
     Indication: BLOOD CHOLESTEROL INCREASED
     Route: 048
     Dates: start: 20041101
  2. ZETIA [Concomitant]
  3. PD5 INHIBITOR [Concomitant]

REACTIONS (2)
  - HAEMATOCHEZIA [None]
  - SEXUAL DYSFUNCTION [None]
